FAERS Safety Report 7773285-1 (Version None)
Quarter: 2011Q3

REPORT INFORMATION
  Report Type: 
  Country: None (occurrence: None)
  Receive Date: 20110922
  Receipt Date: 20110913
  Transmission Date: 20111222
  Serious: Yes (Hospitalization, Disabling)
  Sender: FDA-Public Use
  Company Number: BR-ASTRAZENECA-2011SE55579

PATIENT
  Age: 67 Year
  Sex: Male
  Weight: 85 kg

DRUGS (3)
  1. ANALGESIC [Concomitant]
     Indication: ARTHRALGIA
     Dosage: FREQUENCY AS REQUIRED
     Route: 048
     Dates: start: 20090101
  2. ATACAND [Suspect]
     Indication: HYPERTENSION
     Route: 048
     Dates: start: 20060101, end: 20110913
  3. OMEPRAZOLE [Suspect]
     Indication: PROPHYLAXIS
     Dosage: FREQUENCY AS REQUIERED
     Route: 048
     Dates: start: 20090101

REACTIONS (4)
  - PAIN [None]
  - DRUG INEFFECTIVE [None]
  - ARTHRALGIA [None]
  - BLOOD PRESSURE INADEQUATELY CONTROLLED [None]
